FAERS Safety Report 4393349-2 (Version None)
Quarter: 2004Q3

REPORT INFORMATION
  Report Type: 
  Country: None (occurrence: None)
  Receive Date: 20040709
  Receipt Date: 20040624
  Transmission Date: 20050211
  Serious: Yes (Other)
  Sender: FDA-Public Use
  Company Number: PHBS2004BR08630

PATIENT
  Age: 35 Year
  Sex: Female
  Weight: 53 kg

DRUGS (1)
  1. METHERGINE [Suspect]
     Indication: MENORRHAGIA
     Dosage: 1 DF/DAY
     Route: 048
     Dates: start: 20040301, end: 20040301

REACTIONS (6)
  - ERYTHEMA [None]
  - FEELING HOT [None]
  - HEADACHE [None]
  - PARAESTHESIA [None]
  - VISION BLURRED [None]
  - VISUAL ACUITY REDUCED [None]
